FAERS Safety Report 19062795 (Version 3)
Quarter: 2021Q3

REPORT INFORMATION
  Report Type: Spontaneous
  Country: US (occurrence: US)
  Receive Date: 20210326
  Receipt Date: 20210721
  Transmission Date: 20211014
  Serious: No
  Sender: FDA-Public Use
  Company Number: US-PFIZER INC-2020489388

PATIENT
  Age: 68 Year

DRUGS (1)
  1. PREMPRO [Suspect]
     Active Substance: ESTROGENS, CONJUGATED\MEDROXYPROGESTERONE ACETATE
     Indication: BONE DISORDER
     Dosage: UNK

REACTIONS (3)
  - Malaise [Unknown]
  - Migraine [Unknown]
  - Menopausal symptoms [Unknown]

NARRATIVE: CASE EVENT DATE: 20210326
